FAERS Safety Report 5919872-4 (Version None)
Quarter: 2008Q4

REPORT INFORMATION
  Report Type: 
  Country: None (occurrence: None)
  Receive Date: 20081015
  Receipt Date: 20081003
  Transmission Date: 20090506
  Serious: Yes (Other)
  Sender: FDA-Public Use
  Company Number: US-PFIZER INC-2008085845

PATIENT
  Sex: Female

DRUGS (6)
  1. CHANTIX [Suspect]
     Indication: SMOKING CESSATION THERAPY
     Dates: start: 20080923
  2. ANTIDEPRESSANTS [Concomitant]
  3. SYNTHROID [Concomitant]
  4. ANALGESICS [Concomitant]
  5. MUSCLE RELAXANTS [Concomitant]
  6. ANXIOLYTICS [Concomitant]

REACTIONS (3)
  - GLOSSODYNIA [None]
  - HYPERPHAGIA [None]
  - TONGUE OEDEMA [None]
